FAERS Safety Report 8840726 (Version 1)
Quarter: 2012Q4

REPORT INFORMATION
  Report Type: 
  Country: US (occurrence: US)
  Receive Date: 20121015
  Receipt Date: 20121015
  Transmission Date: 20130627
  Serious: No
  Sender: FDA-Public Use
  Company Number: US-PFIZER INC-2012250775

PATIENT
  Age: 66 Year
  Sex: Female
  Weight: 62.13 kg

DRUGS (5)
  1. BOSULIF [Suspect]
     Indication: LEUKAEMIA
     Dosage: 1 DF, 1x/day (daily)
     Route: 048
     Dates: start: 20121006
  2. JANUMET [Concomitant]
     Indication: BLOOD GLUCOSE INCREASED
     Dosage: 1 DF, 2x/day
  3. ASPIRIN [Concomitant]
     Dosage: 1 DF, 1x/day (daily)
  4. LOSARTAN POTASSIUM [Concomitant]
     Dosage: 1 DF, 1x/day (daily)
  5. CRESTOR [Concomitant]
     Dosage: 1 DF, 1x/day (daily)

REACTIONS (2)
  - Vomiting [Not Recovered/Not Resolved]
  - Diarrhoea [Not Recovered/Not Resolved]
